FAERS Safety Report 9706751 (Version 1)
Quarter: 2013Q4

REPORT INFORMATION
  Report Type: Spontaneous
  Country: JP (occurrence: JP)
  Receive Date: 20131125
  Receipt Date: 20131125
  Transmission Date: 20140711
  Serious: Yes (Other)
  Sender: FDA-Public Use
  Company Number: PHHY2013JP134047

PATIENT
  Sex: Male

DRUGS (1)
  1. VOLTAREN SR [Suspect]
     Dosage: UNK UKN, UNK
     Route: 048

REACTIONS (2)
  - Gastrointestinal disorder [Unknown]
  - Gastrointestinal perforation [Unknown]
